FAERS Safety Report 8548559-7 (Version None)
Quarter: 2012Q3

REPORT INFORMATION
  Report Type: 
  Country: None (occurrence: None)
  Receive Date: 20120730
  Receipt Date: 20120717
  Transmission Date: 20120928
  Serious: Yes (Hospitalization)
  Sender: FDA-Public Use
  Company Number: FR-NOVOPROD-356126

PATIENT
  Age: 67 Year
  Sex: Male

DRUGS (2)
  1. LANTUS [Suspect]
     Dosage: 60 IU, QD
     Route: 065
     Dates: start: 20120515
  2. NOVORAPID [Suspect]
     Indication: PRODUCT USED FOR UNKNOWN INDICATION
     Dosage: 36 U, QD
     Route: 058
     Dates: start: 20120515, end: 20120621

REACTIONS (2)
  - DYSPNOEA [None]
  - OEDEMA [None]
